FAERS Safety Report 24436437 (Version 1)
Quarter: 2024Q4

REPORT INFORMATION
  Report Type: Spontaneous
  Country: DE (occurrence: DE)
  Receive Date: 20241015
  Receipt Date: 20241015
  Transmission Date: 20250115
  Serious: Yes (Hospitalization, Other)
  Sender: CELLTRION
  Company Number: DE-SANDOZ-SDZ2023DE038475

PATIENT

DRUGS (9)
  1. ADALIMUMAB [Suspect]
     Active Substance: ADALIMUMAB
     Indication: Product used for unknown indication
     Dosage: 40 MG
     Route: 065
     Dates: start: 20220922, end: 202212
  2. ADALIMUMAB [Suspect]
     Active Substance: ADALIMUMAB
     Dosage: 40 MG, Q2W
     Route: 065
     Dates: start: 202212
  3. ADALIMUMAB [Suspect]
     Active Substance: ADALIMUMAB
     Dosage: 40 MG
     Route: 065
     Dates: start: 20220601
  4. METHOTREXATE [Suspect]
     Active Substance: METHOTREXATE
     Indication: Product used for unknown indication
     Dosage: 17.5 UNK
     Route: 065
     Dates: start: 20220601
  5. METHOTREXATE [Suspect]
     Active Substance: METHOTREXATE
     Dosage: 15 UNK
     Route: 065
     Dates: start: 20220922, end: 202212
  6. METHOTREXATE [Suspect]
     Active Substance: METHOTREXATE
     Dosage: FROM 12.2022
     Route: 065
     Dates: start: 20230627
  7. METHOTREXATE [Suspect]
     Active Substance: METHOTREXATE
     Dosage: 15 MG, QW
     Route: 065
  8. OLUMIANT [Suspect]
     Active Substance: BARICITINIB
     Indication: Product used for unknown indication
     Dosage: 4 MG, QD
     Route: 065
     Dates: start: 202212
  9. OLUMIANT [Suspect]
     Active Substance: BARICITINIB
     Dosage: 4 MG FROM 12.2022
     Route: 065
     Dates: start: 20230627

REACTIONS (1)
  - Rheumatoid arthritis [Recovered/Resolved]

NARRATIVE: CASE EVENT DATE: 20221205
